FAERS Safety Report 12880821 (Version 1)
Quarter: 2016Q4

REPORT INFORMATION
  Report Type: Spontaneous
  Country: US (occurrence: US)
  Receive Date: 20161024
  Receipt Date: 20161024
  Transmission Date: 20170207
  Serious: Yes (Hospitalization)
  Sender: FDA-Public Use
  Company Number: None

PATIENT
  Age: 69 Year
  Sex: Male
  Weight: 98.97 kg

DRUGS (6)
  1. ASPIRIN. [Concomitant]
     Active Substance: ASPIRIN
  2. AMLODIPINE [Concomitant]
     Active Substance: AMLODIPINE BESYLATE
  3. MULTIVITAMIN [Concomitant]
     Active Substance: VITAMINS
  4. LISINOPRIL 40MG MYLAN [Suspect]
     Active Substance: LISINOPRIL
     Indication: BLOOD PRESSURE MEASUREMENT
     Dosage: 1 TWICE ORALLY
     Route: 048
     Dates: end: 20160929
  5. TAMSULOSIN [Concomitant]
     Active Substance: TAMSULOSIN
  6. OMEPRAZOLE. [Concomitant]
     Active Substance: OMEPRAZOLE

REACTIONS (2)
  - Swelling face [None]
  - Swollen tongue [None]

NARRATIVE: CASE EVENT DATE: 20160927
